FAERS Safety Report 25441224 (Version 1)
Quarter: 2025Q2

REPORT INFORMATION
  Report Type: Spontaneous
  Country: BR (occurrence: BR)
  Receive Date: 20250616
  Receipt Date: 20250616
  Transmission Date: 20250717
  Serious: Yes (Other)
  Sender: Alora Pharma
  Company Number: BR-VERTICAL PHARMACEUTICALS-2025ALO02277

PATIENT
  Age: 56 Year
  Sex: Female
  Weight: 56 kg

DRUGS (5)
  1. ESTRADIOL [Suspect]
     Active Substance: ESTRADIOL
     Indication: Hormone replacement therapy
     Dates: start: 2015
  2. UTROGESTAN [Suspect]
     Active Substance: PROGESTERONE
     Indication: Hormone replacement therapy
     Dosage: (1 D)
     Dates: start: 2016
  3. ANDROGEL [Suspect]
     Active Substance: TESTOSTERONE
     Dosage: TWICE A WEEK (1 WK)
     Dates: start: 2016
  4. ESTRADIOL [Suspect]
     Active Substance: ESTRADIOL
     Indication: Hormone replacement therapy
  5. LAMICTAL [Concomitant]
     Active Substance: LAMOTRIGINE
     Indication: Anxiety disorder
     Dates: start: 2015

REACTIONS (2)
  - Type 2 diabetes mellitus [Unknown]
  - Product availability issue [Unknown]
